FAERS Safety Report 9459921 (Version 1)
Quarter: 2013Q3

REPORT INFORMATION
  Report Type: Spontaneous
  Country: US (occurrence: US)
  Receive Date: 20130815
  Receipt Date: 20130815
  Transmission Date: 20140515
  Serious: Yes (Other)
  Sender: FDA-Public Use
  Company Number: US-BAYER-2013-098039

PATIENT
  Age: 69 Year
  Sex: Female

DRUGS (3)
  1. BAYER GENUINE ASPIRIN ORIGINAL STRENGTH [Suspect]
     Dosage: UNK UNK, PRN
     Route: 048
     Dates: start: 2013, end: 2013
  2. ALEVE CAPLET [Suspect]
     Dosage: UNK
     Route: 048
     Dates: start: 2013, end: 2013
  3. ADVIL [Concomitant]

REACTIONS (2)
  - Rectal haemorrhage [Recovered/Resolved]
  - Haemorrhage [Recovered/Resolved]
